FAERS Safety Report 21196468 (Version 3)
Quarter: 2022Q3

REPORT INFORMATION
  Report Type: Spontaneous
  Country: JP (occurrence: None)
  Receive Date: 20220810
  Receipt Date: 20220919
  Transmission Date: 20221027
  Serious: Yes (Life-Threatening)
  Sender: FDA-Public Use
  Company Number: 2022A281321

PATIENT
  Age: 84 Year
  Sex: Female

DRUGS (3)
  1. ONDEXXYA [Suspect]
     Active Substance: ANDEXANET ALFA
     Indication: Subdural haematoma
     Dosage: 480 MG AT A RATE OF 4 MG/MIN
     Route: 042
     Dates: start: 20220710, end: 20220710
  2. XARELTO [Suspect]
     Active Substance: RIVAROXABAN
     Indication: Subdural haematoma
     Dosage: DOSE UNKNOWN
     Route: 048
     Dates: start: 20220620, end: 20220710
  3. XARELTO [Suspect]
     Active Substance: RIVAROXABAN
     Indication: Subdural haematoma
     Dosage: 15.0MG UNKNOWN
     Route: 048
     Dates: start: 20220712

REACTIONS (1)
  - Cerebral infarction [Recovered/Resolved]

NARRATIVE: CASE EVENT DATE: 20220711
